FAERS Safety Report 6886354-5 (Version None)
Quarter: 2010Q3

REPORT INFORMATION
  Report Type: 
  Country: None (occurrence: None)
  Receive Date: 20100729
  Receipt Date: 20080705
  Transmission Date: 20110219
  Serious: Yes (Other)
  Sender: FDA-Public Use
  Company Number: US-PFIZER INC-2008047511

PATIENT
  Sex: Female
  Weight: 59.09 kg

DRUGS (7)
  1. CELEBREX [Suspect]
     Indication: INFLAMMATION
     Dosage: INTERVAL: EVERY DAY
     Route: 048
     Dates: start: 20050801, end: 20080101
  2. CELEBREX [Suspect]
     Indication: BACK PAIN
  3. XYZAL [Suspect]
  4. FLEXERIL [Concomitant]
  5. FOSAMAX PLUS D [Concomitant]
  6. LISINOPRIL [Concomitant]
  7. DILTIAZEM [Concomitant]

REACTIONS (4)
  - BLOOD PRESSURE INCREASED [None]
  - RASH ERYTHEMATOUS [None]
  - RASH PRURITIC [None]
  - URTICARIA [None]
